FAERS Safety Report 8873005 (Version 1)
Quarter: 2012Q4

REPORT INFORMATION
  Report Type: 
  Country: US (occurrence: US)
  Receive Date: 20121029
  Receipt Date: 20121029
  Transmission Date: 20130627
  Serious: Yes (Hospitalization)
  Sender: FDA-Public Use
  Company Number: US-B.I. PHARMACEUTICALS,INC./RIDGEFIELD-2012-BP-26588BP

PATIENT
  Age: 73 None
  Sex: Female
  Weight: 100 kg

DRUGS (6)
  1. PRADAXA [Suspect]
     Indication: ATRIAL FIBRILLATION
     Dosage: 300 mg
     Route: 048
     Dates: start: 201104
  2. MICARDIS [Suspect]
     Indication: CARDIAC DISORDER
     Dosage: 40 mg
     Route: 048
     Dates: start: 2011
  3. PRILOSEC [Concomitant]
     Indication: GASTRITIS
     Dosage: 20 mg
     Route: 048
     Dates: start: 2011
  4. SYNTHROID [Concomitant]
     Indication: HYPOTHYROIDISM
     Dosage: 100 mcg
     Route: 048
     Dates: start: 2007
  5. PLACQUEL [Concomitant]
     Indication: ARTHRITIS
     Dosage: 200 mg
     Route: 042
     Dates: start: 2010
  6. CELEBREX [Concomitant]
     Indication: ARTHRITIS
     Route: 048
     Dates: start: 201206

REACTIONS (2)
  - Knee arthroplasty [Recovered/Resolved]
  - Contusion [Not Recovered/Not Resolved]
